FAERS Safety Report 7257742-2 (Version None)
Quarter: 2011Q1

REPORT INFORMATION
  Report Type: 
  Country: None (occurrence: None)
  Receive Date: 20110129
  Receipt Date: 20100517
  Transmission Date: 20110831
  Serious: No
  Sender: FDA-Public Use
  Company Number: US-ABBOTT-10P-163-0642498-00

PATIENT
  Sex: Female
  Weight: 74.456 kg

DRUGS (4)
  1. HYDROCODONE [Concomitant]
     Indication: PAIN
  2. CELEBREX [Concomitant]
     Indication: PAIN
  3. HUMIRA [Suspect]
     Indication: RHEUMATOID ARTHRITIS
     Dates: start: 20070101, end: 20100301
  4. METHOTREXATE [Concomitant]
     Indication: RHEUMATOID ARTHRITIS

REACTIONS (3)
  - ARTHRALGIA [None]
  - RHEUMATOID ARTHRITIS [None]
  - JOINT SWELLING [None]
